FAERS Safety Report 7088628-4 (Version None)
Quarter: 2010Q4

REPORT INFORMATION
  Report Type: 
  Country: None (occurrence: None)
  Receive Date: 20101029
  Receipt Date: 20101020
  Transmission Date: 20110411
  Serious: Yes (Hospitalization)
  Sender: FDA-Public Use
  Company Number: 2010US004360

PATIENT
  Age: 29 Year
  Sex: Female
  Weight: 65 kg

DRUGS (4)
  1. PROGRAF [Suspect]
     Indication: RENAL TRANSPLANT
     Dosage: 0.5 MG, BID, ORAL
     Route: 048
     Dates: start: 20060119
  2. PREDNISONE [Concomitant]
  3. COUMADIN [Concomitant]
  4. SINGULAIR [Concomitant]

REACTIONS (2)
  - EPISTAXIS [None]
  - PAIN [None]
